FAERS Safety Report 8242501-4 (Version None)
Quarter: 2012Q1

REPORT INFORMATION
  Report Type: 
  Country: None (occurrence: None)
  Receive Date: 20120329
  Receipt Date: 20120321
  Transmission Date: 20120608
  Serious: Yes (Other)
  Sender: FDA-Public Use
  Company Number: CA-JNJFOC-20120310644

PATIENT
  Age: 37 Year
  Sex: Female

DRUGS (1)
  1. NUCYNTA CR [Suspect]
     Indication: FIBROMYALGIA
     Dosage: 2 TIMES PER DAY
     Route: 048

REACTIONS (2)
  - URINARY TRACT INFECTION [None]
  - CHOKING [None]
